FAERS Safety Report 19926962 (Version 1)
Quarter: 2021Q4

REPORT INFORMATION
  Report Type: Spontaneous
  Country: US (occurrence: US)
  Receive Date: 20211007
  Receipt Date: 20211007
  Transmission Date: 20220303
  Serious: No
  Sender: FDA-Public Use
  Company Number: US-INDIVIOR US-INDV-127534-2020

PATIENT
  Sex: Female

DRUGS (2)
  1. SUBOXONE [Suspect]
     Active Substance: BUPRENORPHINE HYDROCHLORIDE\NALOXONE HYDROCHLORIDE
     Indication: Drug dependence
     Dosage: 2 MILLIGRAM, 5 TIMES/DAY
     Route: 065
     Dates: start: 20200430, end: 2020
  2. SUBOXONE [Suspect]
     Active Substance: BUPRENORPHINE HYDROCHLORIDE\NALOXONE HYDROCHLORIDE
     Indication: Pain
     Dosage: 2 MILLIGRAM, 5 TIMES/DAY
     Route: 065
     Dates: start: 2020

REACTIONS (11)
  - Nightmare [Unknown]
  - Illness [Unknown]
  - Pyrexia [Unknown]
  - Wrong technique in product usage process [Unknown]
  - Inappropriate schedule of product administration [Unknown]
  - Feeling of body temperature change [Unknown]
  - Drug withdrawal syndrome [Unknown]
  - Pain [Unknown]
  - Abdominal pain upper [Unknown]
  - Insomnia [Unknown]
  - Chills [Unknown]

NARRATIVE: CASE EVENT DATE: 20200101
